FAERS Safety Report 24259451 (Version 2)
Quarter: 2024Q4

REPORT INFORMATION
  Report Type: Report from Study
  Country: US (occurrence: US)
  Receive Date: 20240828
  Receipt Date: 20241205
  Transmission Date: 20250115
  Serious: Yes (Other)
  Sender: SUNOVION
  Company Number: US-SUMITOMO PHARMA SWITZERLAND GMBH-2024SPA001529

PATIENT

DRUGS (2)
  1. ORGOVYX [Suspect]
     Active Substance: RELUGOLIX
     Indication: Prostate cancer
     Dosage: 360 MG
     Route: 048
     Dates: start: 20220902, end: 20220902
  2. ORGOVYX [Suspect]
     Active Substance: RELUGOLIX
     Dosage: 120 MG, QD
     Route: 048
     Dates: start: 20220903

REACTIONS (8)
  - Nephrolithiasis [Unknown]
  - Laziness [Unknown]
  - Laboratory test abnormal [Unknown]
  - Arthralgia [Unknown]
  - Hot flush [Unknown]
  - Diarrhoea [Recovered/Resolved]
  - Feeling hot [Unknown]
  - Off label use [Unknown]
